FAERS Safety Report 18307121 (Version 1)
Quarter: 2020Q3

REPORT INFORMATION
  Report Type: Spontaneous
  Country: IN (occurrence: IN)
  Receive Date: 20200924
  Receipt Date: 20200924
  Transmission Date: 20201103
  Serious: Yes (Hospitalization)
  Sender: FDA-Public Use
  Company Number: IN-SUN PHARMACEUTICAL INDUSTRIES LTD-2020R1-261772

PATIENT
  Age: 30 Year
  Sex: Male

DRUGS (3)
  1. NORFLOXACIN [Suspect]
     Active Substance: NORFLOXACIN
     Indication: PRODUCT USED FOR UNKNOWN INDICATION
     Dosage: UNK
     Route: 065
  2. PARACETAMOL [Concomitant]
     Active Substance: ACETAMINOPHEN
     Indication: ASTHENIA
     Dosage: UNK
     Route: 065
  3. CIPROFLOXACIN. [Suspect]
     Active Substance: CIPROFLOXACIN
     Indication: ASTHENIA
     Dosage: UNK
     Route: 065

REACTIONS (4)
  - Vasculitis [Recovering/Resolving]
  - Therapeutic product cross-reactivity [Recovering/Resolving]
  - Drug hypersensitivity [Recovering/Resolving]
  - Oedema peripheral [Recovering/Resolving]
